FAERS Safety Report 6187075-7 (Version None)
Quarter: 2009Q2

REPORT INFORMATION
  Report Type: 
  Country: None (occurrence: None)
  Receive Date: 20090508
  Receipt Date: 20090501
  Transmission Date: 20091009
  Serious: Yes (Hospitalization)
  Sender: FDA-Public Use
  Company Number: TPA2009A00876

PATIENT
  Age: 63 Year
  Sex: Female
  Weight: 74.8435 kg

DRUGS (20)
  1. PREVACID [Suspect]
     Indication: ABDOMINAL DISCOMFORT
     Dosage: 30 MG, 2 IN 1 D, PER ORAL
     Route: 048
     Dates: start: 19940101, end: 20090401
  2. PREVACID [Suspect]
     Indication: GASTROOESOPHAGEAL REFLUX DISEASE
     Dosage: 30 MG, 2 IN 1 D, PER ORAL
     Route: 048
     Dates: start: 19940101, end: 20090401
  3. PLAVIX [Suspect]
     Indication: ANTICOAGULANT THERAPY
     Dosage: 75 MG/KG, 1 IN 1 D,
     Dates: start: 19960101
  4. PLAVIX [Suspect]
     Indication: CORONARY ARTERY OCCLUSION
     Dosage: 75 MG/KG, 1 IN 1 D,
     Dates: start: 19960101
  5. SALICYLATE (SALICYLATES) [Concomitant]
  6. LISINOPRIL [Concomitant]
  7. LEXAPRO [Concomitant]
  8. NORVASC [Concomitant]
  9. TRAZODONE HCL [Concomitant]
  10. ZOCOR [Concomitant]
  11. SINGULAIR [Concomitant]
  12. KLOR-CON [Concomitant]
  13. NEURONTIN [Concomitant]
  14. LASIX [Concomitant]
  15. ROXICET [Concomitant]
  16. OPANA [Concomitant]
  17. SOMA [Concomitant]
  18. DIAZEPAM [Concomitant]
  19. SPIRIVA [Concomitant]
  20. NITROQUICK (GLYCERYL TRINITRATE) [Concomitant]

REACTIONS (8)
  - ARTERIAL OCCLUSIVE DISEASE [None]
  - BLOOD CHOLESTEROL INCREASED [None]
  - BLOOD VISCOSITY INCREASED [None]
  - CORONARY ARTERY OCCLUSION [None]
  - DRUG INTERACTION [None]
  - HEAD INJURY [None]
  - HYPERTENSION [None]
  - MEMORY IMPAIRMENT [None]
